FAERS Safety Report 13183307 (Version 1)
Quarter: 2017Q1

REPORT INFORMATION
  Report Type: Spontaneous
  Country: None (occurrence: US)
  Receive Date: 20170202
  Receipt Date: 20170202
  Transmission Date: 20170428
  Serious: No
  Sender: FDA-Public Use
  Company Number: None

PATIENT
  Age: 63 Year
  Sex: Male

DRUGS (1)
  1. PIPERACILLIN AND TAZOBACTAM [Suspect]
     Active Substance: PIPERACILLIN SODIUM\TAZOBACTAM SODIUM
     Indication: OTITIS EXTERNA
     Route: 042
     Dates: start: 20170130, end: 20170201

REACTIONS (5)
  - Pain [None]
  - Dysphagia [None]
  - Hypoaesthesia oral [None]
  - Paraesthesia oral [None]
  - Hyperaesthesia [None]

NARRATIVE: CASE EVENT DATE: 20170201
